FAERS Safety Report 6454677-X (Version None)
Quarter: 2009Q4

REPORT INFORMATION
  Report Type: 
  Country: None (occurrence: None)
  Receive Date: 20091118
  Receipt Date: 20091107
  Transmission Date: 20100525
  Serious: Yes (Other)
  Sender: FDA-Public Use
  Company Number: 2009AP004579

PATIENT
  Age: 38 Year
  Sex: Male

DRUGS (3)
  1. TRAMADOL HCL [Suspect]
     Indication: HEADACHE
     Dosage: 1350 MG; QD PO, 1350 MG; TAB; PO; QD
     Route: 048
  2. HYDROCODONE (HYDROCODONE) [Concomitant]
  3. OXYCODONE HCL [Concomitant]

REACTIONS (10)
  - CONVULSION [None]
  - DRUG ABUSE [None]
  - DRUG DEPENDENCE [None]
  - DRUG TOLERANCE [None]
  - DRUG WITHDRAWAL HEADACHE [None]
  - ENERGY INCREASED [None]
  - EUPHORIC MOOD [None]
  - MOOD ALTERED [None]
  - REBOUND EFFECT [None]
  - WITHDRAWAL SYNDROME [None]
